FAERS Safety Report 13596410 (Version 1)
Quarter: 2017Q2

REPORT INFORMATION
  Report Type: Spontaneous
  Country: US (occurrence: US)
  Receive Date: 20170530
  Receipt Date: 20170530
  Transmission Date: 20170830
  Serious: Yes (Other)
  Sender: FDA-Public Use
  Company Number: None

PATIENT
  Age: 22 Year
  Sex: Female
  Weight: 51.75 kg

DRUGS (6)
  1. PROVENTIL [Suspect]
     Active Substance: ALBUTEROL
     Indication: ASTHMA
     Dosage: QUANTITY:2 PUFF(S);?
     Route: 055
     Dates: start: 20170530, end: 20170530
  2. ALBUTEROL BIRTH CONTROL [Concomitant]
  3. MULTI-VITAMIN [Concomitant]
     Active Substance: .ALPHA.-TOCOPHEROL ACETATE, DL-\ASCORBIC ACID\CYANOCOBALAMIN\FLUORIDE ION\FOLIC ACID\NIACIN\PYRIDOXINE\RIBOFLAVIN\THIAMINE\VITAMIN A\VITAMIN D
  4. INHALER [Concomitant]
     Active Substance: UNSPECIFIED INGREDIENT
  5. TRI-SPRINTEC [Concomitant]
     Active Substance: ETHINYL ESTRADIOL\NORGESTIMATE
  6. BIOTIN [Concomitant]
     Active Substance: BIOTIN

REACTIONS (2)
  - Product substitution issue [None]
  - Drug prescribing error [None]

NARRATIVE: CASE EVENT DATE: 20170530
